FAERS Safety Report 26045743 (Version 1)
Quarter: 2025Q4

REPORT INFORMATION
  Report Type: Spontaneous
  Country: US (occurrence: US)
  Receive Date: 20251114
  Receipt Date: 20251114
  Transmission Date: 20260118
  Serious: No
  Sender: PHARMACOSMOS A/S
  Company Number: US-NEBO-711314

PATIENT

DRUGS (1)
  1. MONOFERRIC [Suspect]
     Active Substance: FERRIC DERISOMALTOSE
     Indication: Product used for unknown indication

REACTIONS (1)
  - Fishbane reaction [Unknown]
